FAERS Safety Report 7549491-8 (Version None)
Quarter: 2011Q2

REPORT INFORMATION
  Report Type: 
  Country: None (occurrence: None)
  Receive Date: 20110615
  Receipt Date: 20051206
  Transmission Date: 20111010
  Serious: Yes (Death)
  Sender: FDA-Public Use
  Company Number: PHNR2005AU01668

PATIENT
  Sex: Male

DRUGS (3)
  1. CLOZAPINE [Suspect]
     Dosage: 700 MG, QD
     Dates: start: 20051102
  2. DESMOPRESSIN [Concomitant]
  3. ESCITALOPRAM [Concomitant]

REACTIONS (1)
  - DEATH [None]
